FAERS Safety Report 5223197-2 (Version None)
Quarter: 2007Q1

REPORT INFORMATION
  Report Type: 
  Country: None (occurrence: None)
  Receive Date: 20070125
  Receipt Date: 20070118
  Transmission Date: 20070707
  Serious: Yes (Life-Threatening, Hospitalization)
  Sender: FDA-Public Use
  Company Number: E2020-00862-SPO-IN

PATIENT
  Age: 68 Year
  Sex: Male

DRUGS (2)
  1. ARICEPT [Suspect]
     Indication: DEMENTIA
     Dosage: 10 MG, 1 IN 1 D, ORAL
     Route: 048
     Dates: start: 20060901, end: 20060901
  2. S- AMLODIPINE (AMLODIPINE) [Concomitant]

REACTIONS (10)
  - BLOOD PRESSURE IMMEASURABLE [None]
  - BRONCHOSPASM [None]
  - CHOLINERGIC SYNDROME [None]
  - CREPITATIONS [None]
  - DYSPNOEA [None]
  - HYPOTENSION [None]
  - PULSE PRESSURE DECREASED [None]
  - RHONCHI [None]
  - SALIVARY HYPERSECRETION [None]
  - SYNCOPE [None]
